FAERS Safety Report 9224799 (Version 3)
Quarter: 2013Q2

REPORT INFORMATION
  Report Type: Report from Study
  Country: JP (occurrence: JP)
  Receive Date: 20130411
  Receipt Date: 20130522
  Transmission Date: 20140414
  Serious: Yes (Other)
  Sender: FDA-Public Use
  Company Number: JP-OTSUKA-JP-2013-10876

PATIENT
  Age: 68 Year
  Sex: Male

DRUGS (11)
  1. SAMSCA [Suspect]
     Indication: FLUID RETENTION
     Dosage: 15 MG MILLIGRAM(S), QAM
     Route: 048
     Dates: start: 20130228, end: 20130304
  2. LASIX [Concomitant]
     Indication: CARDIAC FAILURE
     Dosage: 480 MG MILLIGRAM(S), DAILY DOSE
     Route: 042
     Dates: end: 20130301
  3. HEPARIN [Concomitant]
     Indication: CARDIAC FAILURE
     Dosage: 15 KIU IU(1000S), DAILY DOSE
     Route: 042
     Dates: end: 20130312
  4. DOPAMINE HYDROCHLORIDE [Concomitant]
     Indication: CARDIAC FAILURE
     Dosage: 20 UG/KG/MIN, UNK
     Route: 042
     Dates: end: 20130313
  5. DOBUPUM [Concomitant]
     Indication: CARDIAC FAILURE
     Dosage: 10 UG/KG/MIN, UNK
     Route: 042
     Dates: end: 20130315
  6. ANCARON [Concomitant]
     Indication: CARDIAC FAILURE
     Dosage: 200 MG MILLIGRAM(S), DAILY DOSE
     Route: 048
  7. TAKEPRON [Concomitant]
     Indication: PROPHYLAXIS
     Dosage: 15 MG MILLIGRAM(S), DAILY DOSE
     Route: 048
     Dates: start: 20130227
  8. ALDACTONE A [Concomitant]
     Indication: CARDIAC FAILURE
     Dosage: 25 MG MILLIGRAM(S), DAILY DOSE
     Route: 048
     Dates: start: 20130228
  9. SOLITA-T1 [Concomitant]
     Indication: CARDIAC FAILURE
     Dosage: 40 ML MILLILITRE(S), Q1HR
     Route: 041
     Dates: start: 20130301, end: 20130320
  10. SOLITA-T1 [Concomitant]
     Indication: HYPERNATRAEMIA
  11. HALFDIGOXIN [Concomitant]
     Indication: CARDIAC FAILURE
     Dosage: 0.125 MG MILLIGRAM(S), DAILY DOSE
     Route: 048
     Dates: start: 20130304

REACTIONS (4)
  - Hypernatraemia [Recovered/Resolved]
  - Blood potassium increased [Unknown]
  - Blood urea increased [Unknown]
  - Blood creatinine increased [Unknown]
